FAERS Safety Report 15533948 (Version 1)
Quarter: 2018Q4

REPORT INFORMATION
  Report Type: Spontaneous
  Country: JP (occurrence: JP)
  Receive Date: 20181019
  Receipt Date: 20181019
  Transmission Date: 20190205
  Serious: Yes (Hospitalization, Other)
  Sender: FDA-Public Use
  Company Number: US-ASTRAZENECA-2018SF27308

PATIENT
  Age: 4 Month
  Sex: Male
  Weight: 8.3 kg

DRUGS (3)
  1. SYNAGIS [Suspect]
     Active Substance: PALIVIZUMAB
     Indication: RESPIRATORY SYNCYTIAL VIRUS INFECTION
     Route: 030
     Dates: start: 201808
  2. SYNAGIS [Suspect]
     Active Substance: PALIVIZUMAB
     Indication: CARDIAC DISORDER
     Route: 030
     Dates: start: 201808
  3. SYNAGIS [Suspect]
     Active Substance: PALIVIZUMAB
     Indication: VENTRICULAR SEPTAL DEFECT
     Route: 030
     Dates: start: 201808

REACTIONS (6)
  - Respiratory syncytial virus infection [Not Recovered/Not Resolved]
  - Weight decreased [Unknown]
  - Neonatal hypoxia [Unknown]
  - Tachypnoea [Unknown]
  - Pneumonia [Unknown]
  - Decreased activity [Unknown]

NARRATIVE: CASE EVENT DATE: 201809
